FAERS Safety Report 4510790-5 (Version None)
Quarter: 2004Q4

REPORT INFORMATION
  Report Type: 
  Country: None (occurrence: None)
  Receive Date: 20041122
  Receipt Date: 20041104
  Transmission Date: 20050328
  Serious: Yes (Hospitalization)
  Sender: FDA-Public Use
  Company Number: DSA_25354_2004

PATIENT
  Age: 29 Year
  Sex: Female

DRUGS (4)
  1. TAVOR [Suspect]
     Dosage: 15 MG ONCE PO
     Route: 048
     Dates: start: 20041031, end: 20041031
  2. ALCOHOL [Suspect]
     Dates: start: 20041031, end: 20041031
  3. ATOSIL [Suspect]
     Dosage: 500 MG ONCE PO
     Route: 048
     Dates: start: 20041031, end: 20041031
  4. SOLIAN [Suspect]
     Dosage: 8000 MG ONCE PO
     Route: 048
     Dates: start: 20041031, end: 20041031

REACTIONS (5)
  - AGITATION [None]
  - BLOOD PRESSURE INCREASED [None]
  - HYPERTONIA [None]
  - MULTIPLE DRUG OVERDOSE INTENTIONAL [None]
  - TACHYCARDIA [None]
